FAERS Safety Report 10094202 (Version 1)
Quarter: 2014Q2

REPORT INFORMATION
  Report Type: Spontaneous
  Country: US (occurrence: None)
  Receive Date: 20140421
  Receipt Date: 20140421
  Transmission Date: 20141212
  Serious: Yes (Life-Threatening, Hospitalization)
  Sender: FDA-Public Use
  Company Number: None

PATIENT
  Age: 57 Year
  Sex: Male
  Weight: 60.78 kg

DRUGS (2)
  1. CEPHALEXIN [Suspect]
     Indication: RASH
     Dosage: TAKEN BY MOUTH
     Dates: start: 20140415, end: 20140415
  2. CEPHALEXIN [Suspect]
     Indication: MALAISE
     Dosage: TAKEN BY MOUTH
     Dates: start: 20140415, end: 20140415

REACTIONS (3)
  - Urticaria [None]
  - Hypoaesthesia [None]
  - Erythema [None]
